FAERS Safety Report 4652165-4 (Version None)
Quarter: 2005Q2

REPORT INFORMATION
  Report Type: 
  Country: None (occurrence: None)
  Receive Date: 20050408
  Receipt Date: 20041213
  Transmission Date: 20051028
  Serious: No
  Sender: FDA-Public Use
  Company Number: 231869K04USA

PATIENT
  Age: 60 Year
  Sex: Male

DRUGS (10)
  1. REBIF [Suspect]
     Indication: MULTIPLE SCLEROSIS
     Dosage: 44 MCG, SUBCUTANEOUS
     Route: 058
     Dates: start: 20030308
  2. GABAPENTIN [Concomitant]
  3. BACLOFEN [Concomitant]
  4. ALPRAZOLAM [Concomitant]
  5. MODAFINIL [Concomitant]
  6. HYDROCORTISONE [Concomitant]
  7. FLUOXETINE [Concomitant]
  8. OXYBUTYNIN [Concomitant]
  9. DANTROLENE SODIUM [Concomitant]
  10. CELEXA [Concomitant]

REACTIONS (9)
  - CHEST DISCOMFORT [None]
  - ERYTHEMA [None]
  - HYPOAESTHESIA [None]
  - JOINT STIFFNESS [None]
  - MUSCLE TIGHTNESS [None]
  - MUSCULOSKELETAL STIFFNESS [None]
  - ODYNOPHAGIA [None]
  - PARAESTHESIA [None]
  - URINARY INCONTINENCE [None]
